FAERS Safety Report 6908987-X (Version None)
Quarter: 2010Q3

REPORT INFORMATION
  Report Type: 
  Country: None (occurrence: None)
  Receive Date: 20100805
  Receipt Date: 20100728
  Transmission Date: 20110219
  Serious: Yes (Hospitalization)
  Sender: FDA-Public Use
  Company Number: FR-KINGPHARMUSA00001-K201000943

PATIENT
  Age: 64 Year
  Sex: Female

DRUGS (8)
  1. ALTACE [Suspect]
     Dosage: UNK
     Route: 048
     Dates: end: 20091118
  2. LASIX [Suspect]
     Dosage: 40 MG, BID
     Route: 048
     Dates: end: 20091118
  3. ULTRAVIST 150 [Suspect]
     Dosage: UNK
     Route: 042
     Dates: start: 20091112, end: 20091112
  4. FENOFIBRATE [Concomitant]
  5. FLECAINIDE ACETATE [Concomitant]
  6. PREVISCAN [Concomitant]
  7. SINGULAIR [Concomitant]
  8. LERCAN [Concomitant]

REACTIONS (6)
  - BLOOD CREATININE INCREASED [None]
  - DYSPNOEA [None]
  - GENERAL PHYSICAL HEALTH DETERIORATION [None]
  - INTRA-ABDOMINAL HAEMATOMA [None]
  - OEDEMA PERIPHERAL [None]
  - RENAL FAILURE ACUTE [None]
